FAERS Safety Report 7064820-X (Version None)
Quarter: 2010Q4

REPORT INFORMATION
  Report Type: 
  Country: None (occurrence: None)
  Receive Date: 20101027
  Receipt Date: 20101021
  Transmission Date: 20110411
  Serious: Yes (Other)
  Sender: FDA-Public Use
  Company Number: US-BAXTER-2010BH026286

PATIENT

DRUGS (6)
  1. CYCLOPHOSPHAMIDE [Suspect]
     Indication: LYMPHOMA
     Route: 065
  2. BORTEZOMIB [Suspect]
     Indication: LYMPHOMA
     Route: 065
  3. RITUXIMAB [Suspect]
     Indication: LYMPHOMA
     Route: 065
  4. DOXORUBICIN HCL [Suspect]
     Indication: LYMPHOMA
     Route: 065
  5. VINCRISTINE SULFATE [Suspect]
     Indication: LYMPHOMA
     Route: 065
  6. PREDNISONE [Suspect]
     Indication: LYMPHOMA
     Route: 065

REACTIONS (1)
  - NEUROPATHY PERIPHERAL [None]
